FAERS Safety Report 9877188 (Version 1)
Quarter: 2014Q1

REPORT INFORMATION
  Report Type: Spontaneous
  Country: AT (occurrence: AT)
  Receive Date: 20140206
  Receipt Date: 20140206
  Transmission Date: 20141002
  Serious: Yes (Hospitalization)
  Sender: FDA-Public Use
  Company Number: AT-AMGEN-AUTSP2014008140

PATIENT
  Age: 76 Year
  Sex: Female
  Weight: 66 kg

DRUGS (4)
  1. ENBREL [Suspect]
     Indication: RHEUMATOID ARTHRITIS
     Dosage: 50 MG, WEEKLY
     Route: 058
     Dates: start: 200810
  2. FOSAMAX [Concomitant]
     Dosage: UNK
  3. CALCIUM W/VITAMIN D NOS [Concomitant]
     Dosage: UNK
  4. EBETREXAT                          /00113801/ [Concomitant]
     Dosage: UNK

REACTIONS (3)
  - Femoral neck fracture [Recovered/Resolved]
  - Periprosthetic fracture [Recovered/Resolved]
  - Injury [Recovered/Resolved]
